FAERS Safety Report 4355817-9 (Version None)
Quarter: 2004Q2

REPORT INFORMATION
  Report Type: 
  Country: None (occurrence: None)
  Receive Date: 20040505
  Receipt Date: 20040422
  Transmission Date: 20050107
  Serious: Yes (Hospitalization, Other)
  Sender: FDA-Public Use
  Company Number: 2004027301

PATIENT
  Sex: Female

DRUGS (9)
  1. NEURONTIN [Suspect]
     Indication: CONVULSION
  2. ALL OTHER THERAPEUTIC PRODUCTS (ALL OTHER THERAPEUTIC PRODUCTS) [Suspect]
     Indication: ILL-DEFINED DISORDER
  3. AMLODIPINE BESYLATE [Concomitant]
  4. ATORVASTATIN CALCIUM [Concomitant]
  5. ISOPHANE INSULIN [Concomitant]
  6. INSULIN HUMAN [Concomitant]
  7. WARFARIN SODIUM [Concomitant]
  8. FUROSEMIDE [Concomitant]
  9. POTASSIUM [Concomitant]

REACTIONS (3)
  - COGNITIVE DISORDER [None]
  - DRUG INTERACTION [None]
  - MALAISE [None]
